FAERS Safety Report 24836960 (Version 1)
Quarter: 2025Q1

REPORT INFORMATION
  Report Type: Spontaneous
  Country: CN (occurrence: CN)
  Receive Date: 20250113
  Receipt Date: 20250113
  Transmission Date: 20250409
  Serious: Yes (Hospitalization, Other)
  Sender: GE HEALTHCARE
  Company Number: CN-GE HEALTHCARE-2025CSU000135

PATIENT
  Age: 71 Year
  Sex: Male

DRUGS (1)
  1. OMNIPAQUE [Suspect]
     Active Substance: IOHEXOL
     Indication: Imaging procedure
     Route: 013
     Dates: start: 20241210, end: 20241210

REACTIONS (6)
  - Muscular weakness [Recovered/Resolved]
  - Cerebral ischaemia [Recovered/Resolved]
  - Lacunar infarction [Recovered/Resolved]
  - Encephalomalacia [Recovered/Resolved]
  - Diplopia [Recovered/Resolved]
  - Vision blurred [Recovered/Resolved]

NARRATIVE: CASE EVENT DATE: 20241210
